FAERS Safety Report 4345978-X (Version None)
Quarter: 2004Q2

REPORT INFORMATION
  Report Type: 
  Country: None (occurrence: None)
  Receive Date: 20040420
  Receipt Date: 20040414
  Transmission Date: 20050107
  Serious: Yes (Hospitalization)
  Sender: FDA-Public Use
  Company Number: FRWYE695207APR04

PATIENT
  Age: 27 Year
  Sex: Male

DRUGS (3)
  1. EFFEXOR XR [Suspect]
     Indication: DEPRESSION
     Dosage: 37.5 MG 2X PER 1 DAY
     Route: 048
     Dates: start: 20020101, end: 20040301
  2. CANNABIS (CANNABIS) [Suspect]
  3. ZYPREXA [Suspect]
     Dosage: LOW DOSE
     Route: 048

REACTIONS (2)
  - AGGRESSION [None]
  - MANIA [None]
